FAERS Safety Report 23451170 (Version 2)
Quarter: 2024Q1

REPORT INFORMATION
  Report Type: Spontaneous
  Country: US (occurrence: US)
  Receive Date: 20240129
  Receipt Date: 20240218
  Transmission Date: 20240410
  Serious: Yes (Other)
  Sender: FDA-Public Use
  Company Number: US-TARSUS PHARMACEUTICALS-TSP-US-2024-000024

PATIENT
  Age: 65 Year
  Sex: Female

DRUGS (1)
  1. XDEMVY [Suspect]
     Active Substance: LOTILANER
     Indication: Eye irritation
     Dosage: 1 DROP, BID (INTO AFFECTED EYE(S) FOR 10 DAYS)
     Route: 047
     Dates: start: 20240112, end: 20240124

REACTIONS (7)
  - Cataract [Not Recovered/Not Resolved]
  - Dry eye [Unknown]
  - Eye pruritus [Recovering/Resolving]
  - Diarrhoea [Not Recovered/Not Resolved]
  - Vision blurred [Unknown]
  - Drug ineffective for unapproved indication [Unknown]
  - Myopia [Unknown]

NARRATIVE: CASE EVENT DATE: 20240101
